FAERS Safety Report 7101466-9 (Version None)
Quarter: 2010Q4

REPORT INFORMATION
  Report Type: 
  Country: None (occurrence: None)
  Receive Date: 20101115
  Receipt Date: 20101101
  Transmission Date: 20110411
  Serious: Yes (Other)
  Sender: FDA-Public Use
  Company Number: PHFR2010GB04920

PATIENT
  Sex: Male

DRUGS (3)
  1. CLOZARIL [Suspect]
     Indication: SCHIZOPHRENIA
     Dosage: 50 MG, BID
     Route: 048
     Dates: start: 20101014
  2. SULPIRIDE [Concomitant]
     Dosage: 1 G, BID
  3. SULPIRIDE [Concomitant]
     Dosage: 800 MG, BID
     Route: 048
     Dates: start: 20101019

REACTIONS (7)
  - BALANCE DISORDER [None]
  - DIPLOPIA [None]
  - MALAISE [None]
  - PHOTOPSIA [None]
  - RASH [None]
  - VISUAL IMPAIRMENT [None]
  - VOMITING [None]
